FAERS Safety Report 9258285 (Version 3)
Quarter: 2013Q2

REPORT INFORMATION
  Report Type: Spontaneous
  Country: IT (occurrence: None)
  Receive Date: 20130422
  Receipt Date: 20130521
  Transmission Date: 20140414
  Serious: Yes (Death, Hospitalization)
  Sender: FDA-Public Use
  Company Number: 2013STPI000139

PATIENT
  Age: 54 Year
  Sex: Female

DRUGS (3)
  1. MATULANE [Suspect]
     Indication: ASTROCYTOMA, LOW GRADE
     Route: 048
     Dates: start: 20130304, end: 20130323
  2. SOLDESAM (DEXAMETHASONE SODIUM PHOSPHATE) [Concomitant]
  3. KEPPRA (LEVETIRACETAM) [Concomitant]

REACTIONS (6)
  - Stevens-Johnson syndrome [None]
  - Respiratory failure [None]
  - Blood lactate dehydrogenase increased [None]
  - Brain neoplasm [None]
  - Neoplasm progression [None]
  - Flavivirus test positive [None]
